FAERS Safety Report 26154736 (Version 1)
Quarter: 2025Q4

REPORT INFORMATION
  Report Type: Spontaneous
  Country: JP (occurrence: JP)
  Receive Date: 20251215
  Receipt Date: 20251215
  Transmission Date: 20260118
  Serious: Yes (Other)
  Sender: MERCK KGAA
  Company Number: JP-Merck Healthcare KGaA-2025064114

PATIENT
  Age: 88 Year
  Sex: Male
  Weight: 74 kg

DRUGS (2)
  1. METGLUCO [Suspect]
     Active Substance: METFORMIN HYDROCHLORIDE
     Indication: Type 2 diabetes mellitus
     Dates: end: 202401
  2. NESINA [Suspect]
     Active Substance: ALOGLIPTIN BENZOATE
     Indication: Type 2 diabetes mellitus

REACTIONS (2)
  - Cardiac failure [Unknown]
  - Diabetes mellitus inadequate control [Recovering/Resolving]

NARRATIVE: CASE EVENT DATE: 20230101
